FAERS Safety Report 8774179 (Version 1)
Quarter: 2012Q4

REPORT INFORMATION
  Report Type: 
  Country: GB (occurrence: GB)
  Receive Date: 20120907
  Receipt Date: 20120907
  Transmission Date: 20130627
  Serious: Yes (Other)
  Sender: FDA-Public Use
  Company Number: PHFR2012GB004838

PATIENT
  Age: 22 Year
  Sex: Male

DRUGS (2)
  1. RITALIN [Suspect]
     Indication: ATTENTION DEFICIT/HYPERACTIVITY DISORDER
     Dosage: 20 mg, Three times a day
  2. SERTRALINE [Concomitant]
     Dosage: 200 mg, a day

REACTIONS (4)
  - Asthma [Unknown]
  - Depression [Unknown]
  - Hypertension [Unknown]
  - Alopecia [Unknown]
